FAERS Safety Report 4559415-3 (Version None)
Quarter: 2005Q1

REPORT INFORMATION
  Report Type: 
  Country: None (occurrence: None)
  Receive Date: 20050119
  Receipt Date: 20050110
  Transmission Date: 20050727
  Serious: Yes (Hospitalization)
  Sender: FDA-Public Use
  Company Number: 2005005949

PATIENT
  Age: 34 Year
  Sex: Female

DRUGS (1)
  1. DEPO-PROVERA [Suspect]
     Indication: CONTRACEPTION
     Dosage: EVERY THREE MONTHS
     Route: 030
     Dates: start: 20030901, end: 20030901

REACTIONS (2)
  - ENDOMETRIAL ATROPHY [None]
  - UTERINE SYNECHIAE [None]
